FAERS Safety Report 7067399-1 (Version None)
Quarter: 2010Q4

REPORT INFORMATION
  Report Type: 
  Country: None (occurrence: None)
  Receive Date: 20101026
  Receipt Date: 20101026
  Transmission Date: 20110411
  Serious: Yes (Other)
  Sender: FDA-Public Use
  Company Number: None

PATIENT
  Age: 1 Year
  Sex: Female
  Weight: 13.1543 kg

DRUGS (2)
  1. HYLANDS TEETHING TABLETS 3 TABLETS [Suspect]
     Indication: TEETHING
     Dosage: AS NEEDED
  2. HYLANDS TEETHING TABLETS 3 TABLETS HYLANDS [Suspect]

REACTIONS (3)
  - MALAISE [None]
  - MUSCULAR WEAKNESS [None]
  - SOMNOLENCE [None]
